FAERS Safety Report 24980606 (Version 1)
Quarter: 2025Q1

REPORT INFORMATION
  Report Type: Spontaneous
  Country: US (occurrence: None)
  Receive Date: 20250214
  Receipt Date: 20250214
  Transmission Date: 20250409
  Serious: Yes (unspecified)
  Sender: FDA-CTU
  Company Number: None

PATIENT
  Age: 52 Year
  Sex: Female

DRUGS (1)
  1. BUSPIRONE [Suspect]
     Active Substance: BUSPIRONE HYDROCHLORIDE
     Route: 048
     Dates: start: 20250117, end: 20250118

REACTIONS (4)
  - Swollen tongue [None]
  - Paraesthesia oral [None]
  - Lip pain [None]
  - Glossodynia [None]

NARRATIVE: CASE EVENT DATE: 20250117
